FAERS Safety Report 13576510 (Version 1)
Quarter: 2017Q2

REPORT INFORMATION
  Report Type: Spontaneous
  Country: CA (occurrence: CA)
  Receive Date: 20170524
  Receipt Date: 20170524
  Transmission Date: 20170830
  Serious: Yes (Other)
  Sender: FDA-Public Use
  Company Number: CA-AMGEN-CANSP2017077281

PATIENT
  Age: 88 Year
  Sex: Female

DRUGS (1)
  1. PROLIA [Suspect]
     Active Substance: DENOSUMAB
     Indication: OSTEOPOROSIS POSTMENOPAUSAL
     Dosage: 60 MG, (9 DOSES)
     Route: 058
     Dates: start: 2012

REACTIONS (6)
  - Fall [Unknown]
  - Tooth abscess [Recovered/Resolved]
  - Periodontitis [Recovered/Resolved]
  - Humerus fracture [Unknown]
  - Osteomyelitis [Recovered/Resolved]
  - Tooth extraction [Unknown]

NARRATIVE: CASE EVENT DATE: 2016
